FAERS Safety Report 5125955-1 (Version None)
Quarter: 2006Q4

REPORT INFORMATION
  Report Type: 
  Country: None (occurrence: None)
  Receive Date: 20061012
  Receipt Date: 20060908
  Transmission Date: 20070319
  Serious: Yes (Hospitalization, Other)
  Sender: FDA-Public Use
  Company Number: RU-AMGEN-ICO192871

PATIENT
  Sex: Female

DRUGS (6)
  1. DARBEPOETIN ALFA [Suspect]
     Indication: RENAL FAILURE CHRONIC
     Route: 058
     Dates: start: 20060420, end: 20060824
  2. ISOPHANE INSULIN [Concomitant]
     Route: 058
  3. ISOPHANE INSULIN [Concomitant]
     Route: 058
  4. ISOPHANE INSULIN [Concomitant]
  5. ENALAPRIL MALEATE [Concomitant]
     Route: 048
     Dates: start: 20060601
  6. INDAPAMIDE [Concomitant]
     Route: 048
     Dates: start: 20060629

REACTIONS (8)
  - BLOOD VISCOSITY INCREASED [None]
  - CARDIAC FAILURE CONGESTIVE [None]
  - CONDITION AGGRAVATED [None]
  - EMBOLIC PNEUMONIA [None]
  - HYDROTHORAX [None]
  - MYOCARDIAL ISCHAEMIA [None]
  - PULMONARY EMBOLISM [None]
  - PULMONARY OEDEMA [None]
